FAERS Safety Report 8407392-7 (Version None)
Quarter: 2012Q2

REPORT INFORMATION
  Report Type: 
  Country: None (occurrence: None)
  Receive Date: 20120604
  Receipt Date: 20120525
  Transmission Date: 20120825
  Serious: Yes (Other)
  Sender: FDA-Public Use
  Company Number: US-ASTRAZENECA-2011SE47993

PATIENT
  Age: 45 Year
  Sex: Female

DRUGS (10)
  1. FLONASE [Concomitant]
     Dosage: 50 MCG/ACT, 1 SUSPENSION 2 SPRAYS EACH NOSTRIL QD
  2. COUMADIN [Concomitant]
  3. UNIPHYL [Concomitant]
  4. ZOLOFT [Concomitant]
     Route: 048
  5. NEXIUM [Suspect]
     Route: 048
  6. ALPRAZOLAM [Concomitant]
     Route: 048
  7. ADVAIR DISKUS 100/50 [Concomitant]
     Dosage: 250-50 MCG/DOSE, 1 AERO POW BR ACT PUFF BID
  8. LASIX [Concomitant]
  9. ACETAZOLAMIDE [Concomitant]
  10. COUMADIN [Concomitant]

REACTIONS (7)
  - CHRONIC OBSTRUCTIVE PULMONARY DISEASE [None]
  - ASTHMA [None]
  - RESPIRATORY FAILURE [None]
  - VENOUS INSUFFICIENCY [None]
  - FLATULENCE [None]
  - BREAST CYST [None]
  - ABDOMINAL PAIN UPPER [None]
